FAERS Safety Report 10021408 (Version 2)
Quarter: 2014Q2

REPORT INFORMATION
  Report Type: Spontaneous
  Country: IT (occurrence: IT)
  Receive Date: 20140319
  Receipt Date: 20140529
  Transmission Date: 20141212
  Serious: Yes (Other)
  Sender: FDA-Public Use
  Company Number: IT-MYLANLABS-2014S1005354

PATIENT
  Age: 13 Year
  Sex: Female
  Weight: 44 kg

DRUGS (1)
  1. CLARITHROMYCIN [Suspect]
     Indication: RHINITIS
     Dosage: 15 MG/KG DAILY
     Route: 048
     Dates: start: 20140227, end: 20140227

REACTIONS (4)
  - Abdominal pain [Recovered/Resolved]
  - Vertigo [Recovered/Resolved]
  - Paraesthesia oral [Recovered/Resolved]
  - Sensation of foreign body [Recovered/Resolved]
